FAERS Safety Report 12440416 (Version 1)
Quarter: 2016Q2

REPORT INFORMATION
  Report Type: Spontaneous
  Country: GB (occurrence: GB)
  Receive Date: 20160606
  Receipt Date: 20160606
  Transmission Date: 20160815
  Serious: Yes (Other)
  Sender: FDA-Public Use
  Company Number: GB-TEVA-664353ACC

PATIENT
  Age: 73 Year
  Sex: Male

DRUGS (2)
  1. MEMANTINE HYDROCHLORIDE. [Suspect]
     Active Substance: MEMANTINE HYDROCHLORIDE
     Indication: DEMENTIA ALZHEIMER^S TYPE
     Dosage: 10 MILLIGRAM DAILY;
     Route: 048
     Dates: start: 20160411, end: 20160419
  2. PARACETAMOL [Concomitant]
     Active Substance: ACETAMINOPHEN

REACTIONS (4)
  - Dyspnoea [Recovering/Resolving]
  - Fatigue [Unknown]
  - Exercise tolerance decreased [Recovering/Resolving]
  - Cyanosis [Unknown]

NARRATIVE: CASE EVENT DATE: 20160412
